FAERS Safety Report 7832892-8 (Version None)
Quarter: 2011Q4

REPORT INFORMATION
  Report Type: 
  Country: None (occurrence: None)
  Receive Date: 20111019
  Receipt Date: 20111011
  Transmission Date: 20120403
  Serious: Yes (Other)
  Sender: FDA-Public Use
  Company Number: AUR-APL-2011-05420

PATIENT
  Sex: Female

DRUGS (4)
  1. LISINOPRIL [Suspect]
     Indication: HYPERTENSION
     Dosage: 40 MG (20 MG,2 IN 1 D)
     Dates: start: 20101029, end: 20110516
  2. BENDROFLUAZIDE (BENDROFLUAZIDE) [Concomitant]
  3. ASPIRIN [Concomitant]
  4. NEBIVOLOL HCL [Concomitant]

REACTIONS (3)
  - OLIGOHYDRAMNIOS [None]
  - MATERNAL EXPOSURE DURING PREGNANCY [None]
  - PREMATURE DELIVERY [None]
